FAERS Safety Report 8847103 (Version 1)
Quarter: 2012Q4

REPORT INFORMATION
  Report Type: Spontaneous
  Country: IT (occurrence: None)
  Receive Date: 20121016
  Receipt Date: 20121016
  Transmission Date: 20130627
  Serious: Yes (Other)
  Sender: FDA-Public Use
  Company Number: DSM-2012-00633

PATIENT
  Age: 59 Year
  Sex: Female

DRUGS (3)
  1. OLMESARTAN MEDOXOMIL, AMLODIPINE BESILATE [Suspect]
     Indication: HYPERTENSION
  2. SEDOXIL (MEXAZOLAM) (MEXAZOLAM) [Concomitant]
  3. CANDESARTAN (CANDESARTAN) (CANDESARTAN) [Concomitant]

REACTIONS (3)
  - Rash [None]
  - Pruritus [None]
  - Lichen planus [None]
